FAERS Safety Report 16270526 (Version 2)
Quarter: 2019Q2

REPORT INFORMATION
  Report Type: Report from Study
  Country: US (occurrence: US)
  Receive Date: 20190503
  Receipt Date: 20190521
  Transmission Date: 20190711
  Serious: Yes (Death, Hospitalization, Other)
  Sender: FDA-Public Use
  Company Number: US-EXELIXIS-CABO-19020248

PATIENT
  Sex: Male

DRUGS (31)
  1. CABOMETYX [Suspect]
     Active Substance: CABOZANTINIB S-MALATE
     Indication: METASTATIC RENAL CELL CARCINOMA
     Dosage: 60 MG, QD
     Route: 048
     Dates: start: 20180907, end: 2018
  2. CABOMETYX [Suspect]
     Active Substance: CABOZANTINIB S-MALATE
     Dosage: 60 MG, QOD
     Route: 048
     Dates: start: 2018
  3. AXITINIB [Concomitant]
     Active Substance: AXITINIB
  4. PROPECIA [Concomitant]
     Active Substance: FINASTERIDE
  5. METOPROLOL SUCCINATE. [Concomitant]
     Active Substance: METOPROLOL SUCCINATE
  6. TYLENOL [Concomitant]
     Active Substance: ACETAMINOPHEN
  7. TESSALON [Concomitant]
     Active Substance: BENZONATATE
  8. PERCOCET [Concomitant]
     Active Substance: ACETAMINOPHEN\OXYCODONE HYDROCHLORIDE
  9. OXYCODONE AND ACETAMINOPHEN [Concomitant]
     Active Substance: ACETAMINOPHEN\OXYCODONE HYDROCHLORIDE
  10. MECLIZINE [Concomitant]
     Active Substance: MECLIZINE HYDROCHLORIDE
  11. MEGACE [Concomitant]
     Active Substance: MEGESTROL ACETATE
  12. OMEPRAZOLE. [Concomitant]
     Active Substance: OMEPRAZOLE
  13. AMLODIPINE [Concomitant]
     Active Substance: AMLODIPINE BESYLATE
  14. ZOFRAN [Concomitant]
     Active Substance: ONDANSETRON HYDROCHLORIDE
  15. SYNTHROID [Concomitant]
     Active Substance: LEVOTHYROXINE SODIUM
  16. LISINOPRIL. [Concomitant]
     Active Substance: LISINOPRIL
  17. ATIVAN [Concomitant]
     Active Substance: LORAZEPAM
  18. LORAZEPAM. [Concomitant]
     Active Substance: LORAZEPAM
  19. NYSTATIN. [Concomitant]
     Active Substance: NYSTATIN
  20. LEVOTHYROXIN [Concomitant]
     Active Substance: LEVOTHYROXINE
  21. CABOMETYX [Suspect]
     Active Substance: CABOZANTINIB S-MALATE
     Dosage: 40 MG, QD
     Route: 048
     Dates: start: 20181116, end: 20190319
  22. CLARITIN [Concomitant]
     Active Substance: LORATADINE
  23. MEGESTROL [Concomitant]
     Active Substance: MEGESTROL
  24. PREDNISONE. [Concomitant]
     Active Substance: PREDNISONE
  25. ROBITUSSIN (GUAIFENESIN) [Concomitant]
     Active Substance: GUAIFENESIN
  26. OMNICEF [Concomitant]
     Active Substance: CEFDINIR
  27. ELIQUIS [Concomitant]
     Active Substance: APIXABAN
  28. FINASTERIDE. [Concomitant]
     Active Substance: FINASTERIDE
  29. AUGMENTIN [Concomitant]
     Active Substance: AMOXICILLIN\CLAVULANATE POTASSIUM
  30. DECADRON [Concomitant]
     Active Substance: DEXAMETHASONE
  31. AVAPRO [Concomitant]
     Active Substance: IRBESARTAN

REACTIONS (11)
  - Malignant neoplasm progression [Fatal]
  - Hyperthyroidism [Unknown]
  - Thrombophlebitis superficial [Unknown]
  - Acute kidney injury [Unknown]
  - Encephalopathy [Unknown]
  - Pleural effusion [Fatal]
  - Cellulitis [Unknown]
  - Anaemia [Unknown]
  - Acute respiratory failure [Unknown]
  - Pneumonia [Fatal]
  - Infrequent bowel movements [Unknown]

NARRATIVE: CASE EVENT DATE: 2018
